FAERS Safety Report 7281795-9 (Version None)
Quarter: 2011Q1

REPORT INFORMATION
  Report Type: 
  Country: None (occurrence: None)
  Receive Date: 20110208
  Receipt Date: 20100527
  Transmission Date: 20110831
  Serious: Yes (Other)
  Sender: FDA-Public Use
  Company Number: US-PFIZER INC-2010067807

PATIENT
  Sex: Female
  Weight: 81.2 kg

DRUGS (4)
  1. METOPROLOL [Concomitant]
     Indication: HEART RATE IRREGULAR
     Dosage: 25 MG, 1X/DAY
     Route: 048
  2. PANTOPRAZOLE [Concomitant]
     Indication: PANCREATIC OPERATION
     Dosage: 40 MG, 1X/DAY
     Route: 048
  3. SUTENT [Suspect]
     Indication: ENDOCRINE DISORDER
     Dosage: 50 MG, 1X/DAY
     Route: 048
     Dates: start: 20100324
  4. LEVOTHYROXINE [Concomitant]
     Indication: THYROID DISORDER
     Dosage: 112 UG, 1X/DAY
     Route: 048

REACTIONS (2)
  - HYPOGLYCAEMIA [None]
  - BLOOD PRESSURE INCREASED [None]
